FAERS Safety Report 5909429-3 (Version None)
Quarter: 2008Q4

REPORT INFORMATION
  Report Type: 
  Country: None (occurrence: None)
  Receive Date: 20081001
  Receipt Date: 20080922
  Transmission Date: 20090506
  Serious: Yes (Death, Hospitalization)
  Sender: FDA-Public Use
  Company Number: GXKR2008DK09134

PATIENT
  Age: 77 Year
  Sex: Female
  Weight: 84.5 kg

DRUGS (10)
  1. CORODIL (NGX) (ENALAPRIL MALEATE) TABLET, 5MG [Suspect]
     Indication: HYPERTENSION
     Dosage: 5 MG/DAY, ORAL
     Route: 048
     Dates: end: 20080526
  2. DIGOXIN ^DAK^ (DIGOXIN) [Concomitant]
  3. FUROSEMIDE [Concomitant]
  4. KALEORID (POTASSIUM CHLORIDE) EXTENDED RELEASE TABLET, 750 MG [Concomitant]
  5. MAREVAN ^NYCOMED^ (WARFARIN SODIUM) [Concomitant]
  6. SYMBICORT [Concomitant]
  7. BRICANYL [Concomitant]
  8. BIOCLAVID (NGX) (AMOXICILLIN, CLAVULANATE) [Concomitant]
  9. PREDNISOLONE [Concomitant]
  10. PANTOPRAZOLE SODIUM [Concomitant]

REACTIONS (2)
  - HEPATITIS TOXIC [None]
  - PANCREATITIS NECROTISING [None]
